FAERS Safety Report 18881474 (Version 1)
Quarter: 2021Q1

REPORT INFORMATION
  Report Type: Spontaneous
  Country: EG (occurrence: EG)
  Receive Date: 20210211
  Receipt Date: 20210211
  Transmission Date: 20210420
  Serious: Yes (Hospitalization, Other)
  Sender: FDA-Public Use
  Company Number: EG-SA-2021SA046349

PATIENT
  Age: 56 Year
  Sex: Female
  Weight: 90 kg

DRUGS (13)
  1. WARFARIN SODIUM. [Suspect]
     Active Substance: WARFARIN SODIUM
     Dosage: 3 MG
  2. PROTOFIX [Concomitant]
     Dosage: 15 MG, TOTAL
     Dates: start: 20201228, end: 20210108
  3. CLEXANE [Suspect]
     Active Substance: ENOXAPARIN SODIUM
     Dosage: 80 MG, BID
     Route: 058
     Dates: start: 20201228
  4. CEFTRIAXON [Concomitant]
     Active Substance: CEFTRIAXONE
     Dosage: 2 G, QD
     Route: 042
     Dates: start: 20201228, end: 20210108
  5. OXYGEN. [Concomitant]
     Active Substance: OXYGEN
  6. ZINC. [Concomitant]
     Active Substance: ZINC
     Dosage: UNK
     Dates: start: 20201228, end: 20210108
  7. CLEXANE [Suspect]
     Active Substance: ENOXAPARIN SODIUM
     Dosage: 60 MG, BID
     Route: 058
     Dates: start: 20210103
  8. CLEXANE [Suspect]
     Active Substance: ENOXAPARIN SODIUM
     Dosage: 40 MG, QD
     Route: 058
     Dates: start: 20210105
  9. VITAMIN C [Concomitant]
     Active Substance: ASCORBIC ACID
     Dosage: UNK
     Dates: start: 20201228, end: 20210108
  10. WARFARIN SODIUM. [Suspect]
     Active Substance: WARFARIN SODIUM
     Dosage: 1.5 MG, QD
     Dates: start: 20210105
  11. DEXAMETHASONE. [Concomitant]
     Active Substance: DEXAMETHASONE
     Dosage: 8 MG, QD
     Route: 042
     Dates: start: 20201228, end: 20201229
  12. LEVOFLOXACIN. [Concomitant]
     Active Substance: LEVOFLOXACIN
     Dosage: 750 MG, QD
     Route: 042
     Dates: start: 20210102, end: 20210107
  13. SOLU?MEDROL [Concomitant]
     Active Substance: METHYLPREDNISOLONE SODIUM SUCCINATE
     Dosage: UNK UNK, QD
     Route: 042
     Dates: start: 20201229, end: 20210108

REACTIONS (2)
  - COVID-19 [Recovered/Resolved]
  - Prothrombin time prolonged [Recovered/Resolved]
